FAERS Safety Report 7908040-2 (Version None)
Quarter: 2011Q4

REPORT INFORMATION
  Report Type: 
  Country: None (occurrence: None)
  Receive Date: 20111110
  Receipt Date: 20111108
  Transmission Date: 20120403
  Serious: Yes (Death, Hospitalization)
  Sender: FDA-Public Use
  Company Number: IT-BRISTOL-MYERS SQUIBB COMPANY-16173999

PATIENT
  Age: 84 Year
  Sex: Female

DRUGS (6)
  1. LASIX [Concomitant]
  2. PIPERACILLIN AND TAZOBACTAM [Concomitant]
     Indication: PYREXIA
  3. COUMADIN [Suspect]
     Indication: ATRIAL FIBRILLATION
     Dosage: 1DF:1UNITS
     Route: 048
     Dates: start: 20080101, end: 20110511
  4. NORVASC [Concomitant]
  5. SEROQUEL [Concomitant]
  6. LANOXIN [Concomitant]
     Indication: CARDIAC FAILURE

REACTIONS (1)
  - DEEP VEIN THROMBOSIS [None]
